FAERS Safety Report 20917874 (Version 3)
Quarter: 2022Q3

REPORT INFORMATION
  Report Type: Spontaneous
  Country: US (occurrence: US)
  Receive Date: 20220606
  Receipt Date: 20220715
  Transmission Date: 20221027
  Serious: Yes (Other)
  Sender: FDA-Public Use
  Company Number: US-BRISTOL-MYERS SQUIBB COMPANY-2022-048129

PATIENT
  Age: 75 Year
  Sex: Male
  Weight: 106.14 kg

DRUGS (3)
  1. REVLIMID [Suspect]
     Active Substance: LENALIDOMIDE
     Indication: Mantle cell lymphoma
     Dosage: TAKE 1 CAPSULE BY MOUTH EVERY DAY FOR 21 DAYS DO NOT BREAK, CHEW, OR OPEN CAPSULES EVERY 28 DAY CYCL
     Route: 048
     Dates: start: 20220509
  2. REVLIMID [Suspect]
     Active Substance: LENALIDOMIDE
     Dosage: TAKE 1 CAPSULE BY MOUTH EVERY DAY.
     Route: 048
     Dates: start: 20220509
  3. RITUXAN [Concomitant]
     Active Substance: RITUXIMAB
     Indication: Product used for unknown indication
     Route: 065

REACTIONS (11)
  - Fatigue [Unknown]
  - Asthenia [Not Recovered/Not Resolved]
  - Cough [Unknown]
  - Oedema peripheral [Unknown]
  - Movement disorder [Unknown]
  - Haemolytic anaemia [Recovered/Resolved]
  - Pain in extremity [Unknown]
  - Blood pressure decreased [Unknown]
  - Decreased appetite [Unknown]
  - Sinus disorder [Unknown]
  - Rash [Unknown]
